FAERS Safety Report 17134109 (Version 1)
Quarter: 2019Q4

REPORT INFORMATION
  Report Type: Spontaneous
  Country: IN (occurrence: IN)
  Receive Date: 20191210
  Receipt Date: 20191210
  Transmission Date: 20200122
  Serious: Yes (Life-Threatening, Hospitalization, Other)
  Sender: FDA-Public Use
  Company Number: IN-LUPIN PHARMACEUTICALS INC.-2019-08156

PATIENT
  Age: 18 Year
  Sex: Male

DRUGS (1)
  1. METRONIDAZOLE. [Suspect]
     Active Substance: METRONIDAZOLE
     Indication: DIARRHOEA
     Dosage: 1.2 GRAM, QD
     Route: 048

REACTIONS (4)
  - Ataxia [Recovered/Resolved]
  - Neurotoxicity [Recovering/Resolving]
  - Toxic encephalopathy [Recovering/Resolving]
  - Self-medication [Unknown]
